FAERS Safety Report 16034284 (Version 2)
Quarter: 2019Q3

REPORT INFORMATION
  Report Type: Spontaneous
  Country: US (occurrence: US)
  Receive Date: 20190305
  Receipt Date: 20190716
  Transmission Date: 20191004
  Serious: Yes (Other)
  Sender: FDA-Public Use
  Company Number: US-IMPAX LABORATORIES, LLC-2018-IPXL-02761

PATIENT
  Age: 75 Year
  Sex: Female
  Weight: 54 kg

DRUGS (7)
  1. RYTARY [Suspect]
     Active Substance: CARBIDOPA\LEVODOPA
     Indication: PARKINSON^S DISEASE
     Dosage: 23.75 /95 MG, ONE CAPSULE ONCE DAILY
     Route: 048
     Dates: start: 20180717, end: 2018
  2. RYTARY [Suspect]
     Active Substance: CARBIDOPA\LEVODOPA
     Dosage: 23.75 /95 MG, THREE TIMES DAILY
     Route: 048
     Dates: start: 2018, end: 2018
  3. LOSARTAN POTASSIUM. [Concomitant]
     Active Substance: LOSARTAN POTASSIUM
     Indication: HYPERTENSION
     Dosage: 50 MILLIGRAM, QD
     Route: 048
  4. RYTARY [Suspect]
     Active Substance: CARBIDOPA\LEVODOPA
     Dosage: 23.75 /95 MG, ONE CAPSULE, 4 /DAY
     Route: 048
     Dates: start: 201807
  5. ASPIRIN. [Concomitant]
     Active Substance: ASPIRIN
     Indication: PAIN
     Dosage: UNK
     Route: 048
  6. RYTARY [Suspect]
     Active Substance: CARBIDOPA\LEVODOPA
     Dosage: 23.75 /95 MG, TWO CAPSULES, ONCE DAILY
     Route: 048
     Dates: start: 2018, end: 2018
  7. RYTARY [Suspect]
     Active Substance: CARBIDOPA\LEVODOPA
     Dosage: 23.75 /95 MG, THREE CAPSULES, ONCE DAILY
     Route: 048
     Dates: start: 2018, end: 2018

REACTIONS (12)
  - Loss of consciousness [Recovering/Resolving]
  - Hypertension [Recovering/Resolving]
  - Abdominal discomfort [Recovering/Resolving]
  - Wound [Recovering/Resolving]
  - Dry mouth [Recovering/Resolving]
  - Traumatic haemorrhage [Recovering/Resolving]
  - Speech disorder [Recovered/Resolved]
  - Headache [Recovering/Resolving]
  - Concussion [Recovering/Resolving]
  - Vision blurred [Recovered/Resolved]
  - Fall [Recovering/Resolving]
  - Fatigue [Recovering/Resolving]

NARRATIVE: CASE EVENT DATE: 2018
